FAERS Safety Report 8978342 (Version 1)
Quarter: 2012Q4

REPORT INFORMATION
  Report Type: 
  Country: US (occurrence: US)
  Receive Date: 20121221
  Receipt Date: 20121221
  Transmission Date: 20130627
  Serious: Yes (Hospitalization)
  Sender: FDA-Public Use
  Company Number: US-ELI_LILLY_AND_COMPANY-US201211006779

PATIENT
  Sex: Male
  Weight: 82 kg

DRUGS (9)
  1. ALIMTA [Suspect]
     Indication: NON-SMALL CELL LUNG CANCER
     Dosage: 990 mg, every 3 weeks
     Route: 042
     Dates: start: 20110914, end: 20121108
  2. VITAMIN B12 [Concomitant]
     Dosage: 1000 ug, UNK
     Dates: start: 20110909, end: 20120503
  3. FOLIC ACID [Concomitant]
     Dosage: 1 mg, UNK
     Route: 048
     Dates: start: 20110909, end: 20121108
  4. VITAMIN D [Concomitant]
  5. OMEPRAZOLE [Concomitant]
  6. MEGACE [Concomitant]
  7. ASA [Concomitant]
  8. AMLODIPINE [Concomitant]
  9. XANAX [Concomitant]

REACTIONS (2)
  - Ejection fraction decreased [Recovered/Resolved with Sequelae]
  - Cardiac failure congestive [Recovered/Resolved with Sequelae]
